FAERS Safety Report 20374639 (Version 2)
Quarter: 2022Q1

REPORT INFORMATION
  Report Type: Spontaneous
  Country: US (occurrence: US)
  Receive Date: 20220125
  Receipt Date: 20220202
  Transmission Date: 20220423
  Serious: No
  Sender: FDA-Public Use
  Company Number: US-PFIZER INC-202101479355

PATIENT
  Age: 58 Year
  Sex: Female
  Weight: 86.168 kg

DRUGS (2)
  1. IBRANCE [Suspect]
     Active Substance: PALBOCICLIB
     Indication: Breast cancer
     Dosage: 75 MG, CYCLIC (1 DAILY FOR 21 DAYS)
     Route: 048
     Dates: start: 20210830
  2. IBRANCE [Suspect]
     Active Substance: PALBOCICLIB
     Dosage: 125 MG

REACTIONS (13)
  - Vomiting [Unknown]
  - Rash [Unknown]
  - Skin burning sensation [Unknown]
  - Bladder discomfort [Unknown]
  - Dry skin [Unknown]
  - Urinary tract infection [Unknown]
  - Stomatitis [Unknown]
  - Arthralgia [Unknown]
  - Skin exfoliation [Unknown]
  - Rash pruritic [Unknown]
  - Skin fissures [Unknown]
  - Pain in extremity [Unknown]
  - Bacterial test positive [Unknown]
